FAERS Safety Report 6856840-2 (Version None)
Quarter: 2010Q3

REPORT INFORMATION
  Report Type: 
  Country: None (occurrence: None)
  Receive Date: 20100719
  Receipt Date: 20100712
  Transmission Date: 20110219
  Serious: Yes (Hospitalization, Other)
  Sender: FDA-Public Use
  Company Number: GB-TEVA-241094ISR

PATIENT
  Age: 17 Year
  Sex: Male

DRUGS (3)
  1. CARBAMAZEPINE [Suspect]
  2. AMISULPRIDE [Suspect]
  3. CLOZAPINE [Suspect]
     Indication: SCHIZOPHRENIA
     Dates: start: 19920116

REACTIONS (37)
  - ABNORMAL BEHAVIOUR [None]
  - AGGRESSION [None]
  - ANTISOCIAL BEHAVIOUR [None]
  - ANXIETY [None]
  - CHOLINERGIC SYNDROME [None]
  - COGNITIVE DISORDER [None]
  - DELUSION [None]
  - DEPRESSION [None]
  - ECHOLALIA [None]
  - HALLUCINATION [None]
  - HALLUCINATION, AUDITORY [None]
  - HYPERLIPIDAEMIA [None]
  - INAPPROPRIATE AFFECT [None]
  - LACERATION [None]
  - MENTAL IMPAIRMENT [None]
  - MULTIPLE DRUG OVERDOSE [None]
  - NEUTROPENIA [None]
  - OBSESSIVE THOUGHTS [None]
  - OVERWEIGHT [None]
  - POVERTY OF SPEECH [None]
  - PSYCHIATRIC SYMPTOM [None]
  - PSYCHOTIC DISORDER [None]
  - PYREXIA [None]
  - RASH [None]
  - RESTLESSNESS [None]
  - SALIVARY GLAND CALCULUS [None]
  - SALIVARY HYPERSECRETION [None]
  - SCHIZOPHRENIA [None]
  - SEDATION [None]
  - SENSORY DISTURBANCE [None]
  - STARING [None]
  - STRESS [None]
  - SUICIDAL IDEATION [None]
  - THEFT [None]
  - THOUGHT BLOCKING [None]
  - TIC [None]
  - TREATMENT NONCOMPLIANCE [None]
